FAERS Safety Report 24430628 (Version 2)
Quarter: 2024Q4

REPORT INFORMATION
  Report Type: Spontaneous
  Country: US (occurrence: US)
  Receive Date: 20241013
  Receipt Date: 20241025
  Transmission Date: 20250114
  Serious: No
  Sender: BAUSCH AND LOMB
  Company Number: US-BAUSCHBL-2024BNL034160

PATIENT
  Age: 69 Year
  Sex: Female

DRUGS (2)
  1. LUMIFY [Suspect]
     Active Substance: BRIMONIDINE TARTRATE
     Indication: Ocular hyperaemia
     Dosage: 1 DROP IN EACH EYE TWICE TO THREE TIMES A DAY AS NEEDED, FOR ATLEAST 6 MONTHS
     Route: 047
     Dates: start: 2024, end: 2024
  2. LUMIFY [Suspect]
     Active Substance: BRIMONIDINE TARTRATE
     Dosage: INCREASED USAGE FROM TWICE A DAY TO THREE TIMES A DAY
     Route: 047
     Dates: start: 2024, end: 202409

REACTIONS (1)
  - Drug ineffective [Not Recovered/Not Resolved]
